FAERS Safety Report 16986124 (Version 2)
Quarter: 2019Q4

REPORT INFORMATION
  Report Type: Spontaneous
  Country: DE (occurrence: DE)
  Receive Date: 20191103
  Receipt Date: 20191124
  Transmission Date: 20200122
  Serious: Yes (Disabling, Other)
  Sender: FDA-Public Use
  Company Number: DE-009507513-1910DEU016907

PATIENT
  Age: 77 Year
  Sex: Female

DRUGS (2)
  1. IPILIMUMAB [Suspect]
     Active Substance: IPILIMUMAB
     Indication: ACRAL LENTIGINOUS MELANOMA
     Dosage: UNK
  2. PEMBROLIZUMAB. [Suspect]
     Active Substance: PEMBROLIZUMAB
     Indication: ACRAL LENTIGINOUS MELANOMA
     Dosage: UNK, Q3W

REACTIONS (2)
  - Eosinophilic fasciitis [Recovering/Resolving]
  - Autoimmune hepatitis [Recovering/Resolving]
